FAERS Safety Report 8283488 (Version 5)
Quarter: 2014Q1

REPORT INFORMATION
  Report Type: Spontaneous
  Country: US (occurrence: None)
  Receive Date: 20111122
  Receipt Date: 20130107
  Transmission Date: 20141002
  Serious: Yes (Other)
  Sender: FDA-Public Use
  Company Number: PHHY2011US63650

PATIENT
  Age: 52 Year
  Sex: Female
  Weight: 93.2 kg

DRUGS (14)
  1. GILENYA [Suspect]
     Indication: MULTIPLE SCLEROSIS RELAPSE
     Route: 048
     Dates: start: 201103
  2. CALCIUM CARBONATE [Concomitant]
  3. MAGNESIUM (MAGNESIUM) [Concomitant]
  4. PROVIGIL [Concomitant]
  5. VITAMIN D (ERGOCALCIFEROL) [Concomitant]
  6. LEXAPRO [Concomitant]
  7. ROPINIROLE [Concomitant]
  8. CIPROFLOXACIN EXTENDED-RELEASE [Concomitant]
  9. MIRAPEX (PRAMIPEXOLE DIHYDROCHLORIDE) [Concomitant]
  10. FLOMAX (TAMSULOSIN HYDROCHLORIDE) [Concomitant]
  11. LIORESAL (BACLOFEN) [Concomitant]
  12. COENZYME Q10 (UBIDECARENONE) CAPSULE [Concomitant]
  13. VITAMIN D3 (COLECALCIFEROL) TABLET [Concomitant]
  14. NUVIGIL (ARMODAFINIL) TABLET [Concomitant]

REACTIONS (16)
  - CD4 lymphocytes decreased [None]
  - Sinusitis [None]
  - Cystitis [None]
  - Central nervous system lesion [None]
  - Urine analysis abnormal [None]
  - Fatigue [None]
  - Full blood count decreased [None]
  - Urinary tract infection [None]
  - Leukopenia [None]
  - Micturition urgency [None]
  - T-lymphocyte count decreased [None]
  - CD8 lymphocytes decreased [None]
  - Herpes zoster [None]
  - Rash [None]
  - Genital rash [None]
  - Sinus congestion [None]
